FAERS Safety Report 6013558-6 (Version None)
Quarter: 2008Q4

REPORT INFORMATION
  Report Type: 
  Country: None (occurrence: None)
  Receive Date: 20081219
  Receipt Date: 20081217
  Transmission Date: 20090506
  Serious: Yes (Other)
  Sender: FDA-Public Use
  Company Number: FR-WYE-G02811008

PATIENT
  Age: 49 Year
  Sex: Male

DRUGS (1)
  1. TORISEL [Suspect]
     Route: 042
     Dates: end: 20080101

REACTIONS (7)
  - BLOOD TRIGLYCERIDES INCREASED [None]
  - DEEP VEIN THROMBOSIS [None]
  - DRY SKIN [None]
  - EPISTAXIS [None]
  - HYPOTHYROIDISM [None]
  - NEUROPATHY PERIPHERAL [None]
  - SKIN FISSURES [None]
